FAERS Safety Report 15764025 (Version 2)
Quarter: 2019Q1

REPORT INFORMATION
  Report Type: Report from Study
  Country: None (occurrence: AU)
  Receive Date: 20181227
  Receipt Date: 20190201
  Transmission Date: 20190417
  Serious: Yes (Hospitalization)
  Sender: FDA-Public Use
  Company Number: AU-ABBVIE-18S-008-2603130-00

PATIENT
  Age: 80 Year
  Sex: Female

DRUGS (1)
  1. DUODOPA [Suspect]
     Active Substance: CARBIDOPA\LEVODOPA
     Indication: PARKINSON^S DISEASE
     Dosage: 100 ML CASSETTE 16 HOUR INFUSION
     Route: 050
     Dates: start: 20160215

REACTIONS (7)
  - Malaise [Unknown]
  - Confusional state [Unknown]
  - Unintentional medical device removal [Recovered/Resolved]
  - Fine motor skill dysfunction [Unknown]
  - Delirium [Recovering/Resolving]
  - Fall [Unknown]
  - Hallucination [Recovering/Resolving]

NARRATIVE: CASE EVENT DATE: 20181213
